FAERS Safety Report 10238144 (Version 2)
Quarter: 2014Q2

REPORT INFORMATION
  Report Type: Spontaneous
  Country: CH (occurrence: CH)
  Receive Date: 20140616
  Receipt Date: 20140620
  Transmission Date: 20141212
  Serious: Yes (Other)
  Sender: FDA-Public Use
  Company Number: PHHY2014CH072968

PATIENT
  Age: 18 Year
  Sex: Male

DRUGS (3)
  1. TASIGNA [Suspect]
     Dosage: 300 MG, BID
  2. TASIGNA [Suspect]
     Route: 048
  3. LITALIR [Concomitant]

REACTIONS (3)
  - Lung infiltration [Unknown]
  - C-reactive protein decreased [Unknown]
  - Dyspnoea [Unknown]
